FAERS Safety Report 5891152-5 (Version None)
Quarter: 2008Q3

REPORT INFORMATION
  Report Type: 
  Country: None (occurrence: None)
  Receive Date: 20080922
  Receipt Date: 20080919
  Transmission Date: 20090109
  Serious: No
  Sender: FDA-Public Use
  Company Number: US-BAYER-200830819NA

PATIENT
  Sex: Female

DRUGS (1)
  1. YAZ [Suspect]
     Indication: DRUG USE FOR UNKNOWN INDICATION
     Route: 048
     Dates: start: 20080803

REACTIONS (5)
  - CHEILITIS [None]
  - CHROMATURIA [None]
  - CYSTITIS [None]
  - HYPOAESTHESIA ORAL [None]
  - POLLAKIURIA [None]
